FAERS Safety Report 8721026 (Version 2)
Quarter: 2012Q4

REPORT INFORMATION
  Report Type: Report from Study
  Country: JP (occurrence: JP)
  Receive Date: 20120813
  Receipt Date: 20121012
  Transmission Date: 20130627
  Serious: Yes (Hospitalization, Other)
  Sender: FDA-Public Use
  Company Number: JP-PFIZER INC-2012193501

PATIENT
  Age: 72 Year
  Sex: Male
  Weight: 50 kg

DRUGS (9)
  1. CAMPTO [Suspect]
     Indication: COLORECTAL CANCER
     Dosage: 200 mg, 1x/day
     Route: 041
     Dates: start: 20100804, end: 20100804
  2. CAMPTO [Suspect]
     Dosage: 200 mg, 1x/day
     Route: 041
     Dates: start: 20100818, end: 20100818
  3. CAMPTO [Suspect]
     Dosage: 200 mg, 1x/day
     Route: 041
     Dates: start: 20101004, end: 20101004
  4. 5-FU [Suspect]
     Indication: COLORECTAL CANCER
     Dosage: 3650 mg, once in 2 days
     Route: 041
     Dates: start: 20100804, end: 20100804
  5. 5-FU [Suspect]
     Dosage: 3650 mg, once in 2 days
     Route: 041
     Dates: start: 20100818, end: 20100818
  6. 5-FU [Suspect]
     Dosage: 3650 mg, once in 2 days
     Route: 041
     Dates: start: 20101004, end: 20101004
  7. CALCIUM LEVOFOLINATE [Concomitant]
     Indication: COLORECTAL CANCER
     Dosage: 300 mg, UNK
     Dates: start: 20100804, end: 20100804
  8. AVASTIN [Concomitant]
     Indication: COLORECTAL CANCER
     Dosage: UNK
     Dates: start: 20101004, end: 20101004
  9. DEXART [Concomitant]
     Dosage: UNK
     Dates: start: 20101006, end: 20101018

REACTIONS (2)
  - Melaena [Recovering/Resolving]
  - Hypophagia [Recovering/Resolving]
